FAERS Safety Report 8096377-9 (Version None)
Quarter: 2012Q1

REPORT INFORMATION
  Report Type: 
  Country: None (occurrence: None)
  Receive Date: 20120129
  Receipt Date: 20111213
  Transmission Date: 20120608
  Serious: Yes (Hospitalization, Other)
  Sender: FDA-Public Use
  Company Number: US-ABBOTT-11P-163-0872719-00

PATIENT
  Sex: Male
  Weight: 71.732 kg

DRUGS (4)
  1. HUMIRA [Suspect]
     Indication: RHEUMATOID ARTHRITIS
     Route: 058
     Dates: start: 20090101, end: 20110901
  2. METHOTREXATE [Suspect]
     Indication: IRITIS
  3. HUMIRA [Suspect]
     Indication: IRITIS
  4. METHOTREXATE [Suspect]
     Indication: RHEUMATOID ARTHRITIS
     Dates: start: 20090101, end: 20110901

REACTIONS (7)
  - OFF LABEL USE [None]
  - STAPHYLOCOCCAL INFECTION [None]
  - ABDOMINAL PAIN UPPER [None]
  - PYREXIA [None]
  - IRITIS [None]
  - FOLLICULITIS [None]
  - COLITIS ISCHAEMIC [None]
